FAERS Safety Report 9665742 (Version 1)
Quarter: 2013Q4

REPORT INFORMATION
  Report Type: Report from Study
  Country: AR (occurrence: AR)
  Receive Date: 20131104
  Receipt Date: 20131104
  Transmission Date: 20140711
  Serious: Yes (Other)
  Sender: FDA-Public Use
  Company Number: PHHY2013AR124522

PATIENT
  Age: 55 Year
  Sex: Female

DRUGS (2)
  1. ONBREZ [Suspect]
     Indication: CHRONIC OBSTRUCTIVE PULMONARY DISEASE
     Dosage: 1 DF, QD
     Dates: start: 20131030
  2. ONBREZ [Suspect]
     Indication: EMPHYSEMA

REACTIONS (2)
  - Back pain [Recovering/Resolving]
  - Pleuritic pain [Recovering/Resolving]
